FAERS Safety Report 7413810-3 (Version None)
Quarter: 2011Q2

REPORT INFORMATION
  Report Type: 
  Country: None (occurrence: None)
  Receive Date: 20110413
  Receipt Date: 20110405
  Transmission Date: 20111010
  Serious: Yes (Hospitalization, Other)
  Sender: FDA-Public Use
  Company Number: US-MERCK-1010USA01162

PATIENT
  Age: 71 Year
  Sex: Female
  Weight: 80 kg

DRUGS (4)
  1. FOSAMAX [Suspect]
     Indication: OSTEOPENIA
     Route: 048
     Dates: start: 20010612, end: 20080601
  2. PREDNISONE [Concomitant]
     Route: 065
     Dates: start: 19840101
  3. VITAMINS (UNSPECIFIED) [Concomitant]
     Route: 065
     Dates: start: 19950101
  4. CALCIUM (UNSPECIFIED) AND VITAMIN D (UNSPECIFIED) [Concomitant]
     Route: 065
     Dates: start: 19950101

REACTIONS (28)
  - FOOT FRACTURE [None]
  - URINARY TRACT INFECTION [None]
  - FEMUR FRACTURE [None]
  - SKIN CANCER [None]
  - ADVERSE DRUG REACTION [None]
  - LOW TURNOVER OSTEOPATHY [None]
  - BURSITIS [None]
  - TENDONITIS [None]
  - DYSPEPSIA [None]
  - ANXIETY [None]
  - PAIN [None]
  - HYPOACUSIS [None]
  - GAIT DISTURBANCE [None]
  - DEVICE FAILURE [None]
  - HAEMOGLOBIN DECREASED [None]
  - GASTRIC ULCER [None]
  - SPINAL COLUMN STENOSIS [None]
  - CARDIOMEGALY [None]
  - FALL [None]
  - RADICULOPATHY [None]
  - PNEUMONIA [None]
  - GASTROOESOPHAGEAL REFLUX DISEASE [None]
  - LIMB INJURY [None]
  - BRONCHITIS [None]
  - SPONDYLOLISTHESIS [None]
  - ARTHRITIS [None]
  - INTERVERTEBRAL DISC DEGENERATION [None]
  - BACK PAIN [None]
